FAERS Safety Report 18184612 (Version 1)
Quarter: 2020Q3

REPORT INFORMATION
  Report Type: Spontaneous
  Country: US (occurrence: US)
  Receive Date: 20200824
  Receipt Date: 20200824
  Transmission Date: 20201103
  Serious: Yes (Other)
  Sender: FDA-Public Use
  Company Number: US-SA-2020SA217832

PATIENT

DRUGS (1)
  1. ZANTAC [Suspect]
     Active Substance: RANITIDINE HYDROCHLORIDE
     Dosage: UNK UNK, BID
     Dates: start: 2013, end: 201909

REACTIONS (4)
  - Anxiety [Unknown]
  - Injury [Unknown]
  - Gastric cancer [Unknown]
  - Pain [Unknown]
